FAERS Safety Report 4307082-6 (Version None)
Quarter: 2004Q1

REPORT INFORMATION
  Report Type: 
  Country: None (occurrence: None)
  Receive Date: 20040227
  Receipt Date: 20040219
  Transmission Date: 20041129
  Serious: Yes (Other)
  Sender: FDA-Public Use
  Company Number: PHBS2004BR02488

PATIENT

DRUGS (1)
  1. VOLTAREN [Suspect]

REACTIONS (3)
  - APPLICATION SITE ABSCESS [None]
  - APPLICATION SITE NECROSIS [None]
  - PLASTIC SURGERY [None]
